FAERS Safety Report 6327684-5 (Version None)
Quarter: 2009Q3

REPORT INFORMATION
  Report Type: 
  Country: None (occurrence: None)
  Receive Date: 20090825
  Receipt Date: 20090818
  Transmission Date: 20100115
  Serious: Yes (Hospitalization)
  Sender: FDA-Public Use
  Company Number: PHHO2009NL10168

PATIENT
  Sex: Female
  Weight: 72 kg

DRUGS (1)
  1. ERL 080A ERL+TAB [Suspect]
     Indication: LUNG TRANSPLANT
     Dosage: UNK
     Route: 048

REACTIONS (2)
  - DYSPNOEA [None]
  - PULMONARY EMBOLISM [None]
